FAERS Safety Report 16488972 (Version 1)
Quarter: 2019Q2

REPORT INFORMATION
  Report Type: Spontaneous
  Country: TW (occurrence: TW)
  Receive Date: 20190628
  Receipt Date: 20190628
  Transmission Date: 20190711
  Serious: Yes (Other)
  Sender: FDA-Public Use
  Company Number: TW-SUN PHARMACEUTICAL INDUSTRIES LTD-2018R1-195197

PATIENT
  Age: 31 Year
  Sex: Female

DRUGS (6)
  1. LITHIUM. [Interacting]
     Active Substance: LITHIUM
     Dosage: 900 MILLIGRAM, DAILY TITRATED
     Route: 065
  2. CLOTIAPINE [Interacting]
     Active Substance: CLOTHIAPINE
     Indication: BIPOLAR I DISORDER
     Dosage: 120 MILLIGRAM, DAILY
     Route: 065
  3. QUETIAPINE. [Concomitant]
     Active Substance: QUETIAPINE
     Indication: BIPOLAR I DISORDER
     Dosage: SLOW TITRATION TO 600 MG/DAY
     Route: 065
  4. LITHIUM. [Interacting]
     Active Substance: LITHIUM
     Dosage: 900 MILLIGRAM, DAILY MAINTENANCE DOSAGE IN 2 WEEKS
     Route: 065
  5. LITHIUM. [Suspect]
     Active Substance: LITHIUM
     Indication: BIPOLAR I DISORDER
     Dosage: 600 MILLIGRAM, DAILY
     Route: 065
  6. CLOTIAPINE [Interacting]
     Active Substance: CLOTHIAPINE
     Dosage: 160 MILLIGRAM, DAILY
     Route: 065

REACTIONS (2)
  - Drug interaction [Unknown]
  - Pleurothotonus [Recovered/Resolved]
